FAERS Safety Report 6000656-6 (Version None)
Quarter: 2008Q4

REPORT INFORMATION
  Report Type: 
  Country: None (occurrence: None)
  Receive Date: 20081211
  Receipt Date: 20081125
  Transmission Date: 20090506
  Serious: Yes (Life-Threatening, Hospitalization)
  Sender: FDA-Public Use
  Company Number: 2008002969

PATIENT
  Age: 66 Year
  Sex: Male

DRUGS (9)
  1. ERLOTINIB [Suspect]
     Indication: PANCREATIC CARCINOMA METASTATIC
     Dosage: 100 MG, ORAL
     Route: 048
     Dates: start: 20080904, end: 20081106
  2. GEMCITABINE [Suspect]
     Indication: PANCREATIC CARCINOMA METASTATIC
     Dosage: 2100 MG, QW, INTAVENEOUS
     Route: 042
     Dates: start: 20080904, end: 20081106
  3. ESOMEPRAZOLE MAGNESIUM [Concomitant]
  4. NOVALGIN (METAMIZOLE SODIUM) [Concomitant]
  5. IBUPROFEN TABLETS [Concomitant]
  6. FRAXIPARIN (HEPARIN-FRACTION, CALCIUM SALT) [Concomitant]
  7. ZOFRAN [Concomitant]
  8. TRAIMTEREN COMP [Concomitant]
  9. METOCLOPRAMIDE [Concomitant]

REACTIONS (2)
  - CYTOGENETIC ABNORMALITY [None]
  - PULMONARY EMBOLISM [None]
